FAERS Safety Report 5662458-X (Version None)
Quarter: 2008Q1

REPORT INFORMATION
  Report Type: 
  Country: None (occurrence: None)
  Receive Date: 20080313
  Receipt Date: 20080307
  Transmission Date: 20080703
  Serious: Yes (Other)
  Sender: FDA-Public Use
  Company Number: PHHY2008BR02789

PATIENT
  Age: 73 Year
  Sex: Male
  Weight: 78 kg

DRUGS (7)
  1. LEPONEX [Suspect]
     Indication: SCHIZOPHRENIA
     Dosage: 2 TABLETS AT NIGHT
     Route: 048
     Dates: start: 19930201
  2. FRISIUM [Concomitant]
     Indication: INSOMNIA
     Dosage: 5 MG, AT NIGHT
     Route: 048
  3. SELOZOK [Concomitant]
     Dosage: 50 MG
     Route: 048
  4. CARDIZEM [Concomitant]
     Dosage: 9 MG, QD
     Route: 048
  5. LANSOPRAZOLE [Concomitant]
     Indication: BARRETT'S OESOPHAGUS
     Dosage: 30 MG
     Route: 048
  6. DETRUSITOL [Concomitant]
     Indication: URINARY INCONTINENCE
     Dosage: 2 MG, QD
     Route: 048
  7. RISPERIDONE [Concomitant]
     Dosage: 1.5 MG, QD
     Route: 048
     Dates: start: 19930101

REACTIONS (7)
  - DENGUE FEVER [None]
  - DISTRACTIBILITY [None]
  - FACE INJURY [None]
  - FALL [None]
  - HAND FRACTURE [None]
  - PLATELET COUNT DECREASED [None]
  - SWELLING FACE [None]
